FAERS Safety Report 9095065 (Version 1)
Quarter: 2013Q1

REPORT INFORMATION
  Report Type: Spontaneous
  Country: US (occurrence: None)
  Receive Date: 20130214
  Receipt Date: 20130214
  Transmission Date: 20140127
  Serious: Yes (Life-Threatening)
  Sender: FDA-Public Use
  Company Number: None

PATIENT
  Sex: Female
  Weight: 72.58 kg

DRUGS (1)
  1. CHANTIX [Suspect]
     Indication: SMOKING CESSATION THERAPY
     Dates: start: 200702, end: 200904

REACTIONS (8)
  - Sleep terror [None]
  - Abnormal dreams [None]
  - Suicidal ideation [None]
  - Tremor [None]
  - Parosmia [None]
  - Speech disorder [None]
  - Gait disturbance [None]
  - Eating disorder [None]
